FAERS Safety Report 4633518-7 (Version None)
Quarter: 2005Q2

REPORT INFORMATION
  Report Type: 
  Country: None (occurrence: None)
  Receive Date: 20050331
  Receipt Date: 20041116
  Transmission Date: 20051028
  Serious: Yes (Other)
  Sender: FDA-Public Use
  Company Number: 200415555BCC

PATIENT
  Age: 72 Year
  Sex: Female
  Weight: 79.3795 kg

DRUGS (3)
  1. ALEVE [Suspect]
     Indication: ARTHRALGIA
     Dosage: ORAL
     Route: 048
  2. VITAMINS (WALMART BRAND) [Concomitant]
  3. PREVACID [Concomitant]

REACTIONS (1)
  - RECTAL HAEMORRHAGE [None]
